FAERS Safety Report 4651371-2 (Version None)
Quarter: 2005Q2

REPORT INFORMATION
  Report Type: 
  Country: None (occurrence: None)
  Receive Date: 20050503
  Receipt Date: 20041013
  Transmission Date: 20051028
  Serious: Yes (Death)
  Sender: FDA-Public Use
  Company Number: CA-ABBOTT-04P-028-0277713-00

PATIENT
  Age: 57 Year
  Sex: Male

DRUGS (11)
  1. VALPROIC ACID [Suspect]
     Indication: BIPOLAR DISORDER
     Route: 048
  2. VALPROIC ACID [Suspect]
     Indication: MANIA
  3. VALPROIC ACID [Suspect]
     Indication: PSYCHOTIC DISORDER
  4. OLANZAPINE [Suspect]
     Indication: BIPOLAR DISORDER
     Route: 048
     Dates: start: 20040422
  5. OLANZAPINE [Suspect]
     Indication: MANIA
  6. OLANZAPINE [Suspect]
     Indication: PSYCHOTIC DISORDER
  7. POSTMARKETED STUDY DRUGS [Suspect]
     Indication: DRUG USE FOR UNKNOWN INDICATION
     Dates: start: 20040422
  8. CLONAZEPAM [Concomitant]
     Indication: DRUG USE FOR UNKNOWN INDICATION
     Route: 048
  9. OMEPRAZOLE [Concomitant]
     Indication: DRUG USE FOR UNKNOWN INDICATION
  10. ROFECOXIB [Concomitant]
     Indication: DRUG USE FOR UNKNOWN INDICATION
  11. ZOPICLONE [Concomitant]
     Indication: DRUG USE FOR UNKNOWN INDICATION
     Route: 048

REACTIONS (3)
  - ABDOMINAL DISCOMFORT [None]
  - CHEST DISCOMFORT [None]
  - LOBAR PNEUMONIA [None]
